FAERS Safety Report 10913620 (Version 1)
Quarter: 2015Q1

REPORT INFORMATION
  Report Type: Spontaneous
  Country: US (occurrence: None)
  Receive Date: 20150310
  Receipt Date: 20150310
  Transmission Date: 20150721
  Serious: Yes (Hospitalization)
  Sender: FDA-Public Use
  Company Number: None

PATIENT
  Age: 58 Year
  Sex: Male
  Weight: 116.5 kg

DRUGS (2)
  1. CITALOPRAM [Suspect]
     Active Substance: CITALOPRAM HYDROBROMIDE
     Indication: DEPRESSION
     Route: 048
     Dates: start: 20150227, end: 20150308
  2. TERAZOSIN [Suspect]
     Active Substance: TERAZOSIN\TERAZOSIN HYDROCHLORIDE
     Route: 048
     Dates: start: 20091229, end: 20150308

REACTIONS (7)
  - Tachycardia [None]
  - Oxygen saturation decreased [None]
  - Intentional overdose [None]
  - Sleep apnoea syndrome [None]
  - Depression [None]
  - Benign prostatic hyperplasia [None]
  - Diabetes mellitus [None]

NARRATIVE: CASE EVENT DATE: 20150308
